FAERS Safety Report 5051231-1 (Version None)
Quarter: 2006Q3

REPORT INFORMATION
  Report Type: 
  Country: None (occurrence: None)
  Receive Date: 20060714
  Receipt Date: 20060704
  Transmission Date: 20061208
  Serious: Yes (Other)
  Sender: FDA-Public Use
  Company Number: PHFR2006GB02137

PATIENT
  Age: 33 Year
  Sex: Male

DRUGS (5)
  1. NEORAL [Suspect]
     Indication: RENAL TRANSPLANT
     Route: 065
     Dates: start: 20041001
  2. PREDNISOLONE [Concomitant]
  3. FUROSEMIDE [Concomitant]
  4. LISINOPRIL [Concomitant]
  5. MYCOPHENOLATE MOFETIL [Suspect]

REACTIONS (1)
  - INFERTILITY [None]
